FAERS Safety Report 8145636-X (Version None)
Quarter: 2012Q1

REPORT INFORMATION
  Report Type: 
  Country: None (occurrence: None)
  Receive Date: 20120217
  Receipt Date: 20110314
  Transmission Date: 20120608
  Serious: No
  Sender: FDA-Public Use
  Company Number: US-ABBOTT-11P-163-0711219-00

PATIENT
  Sex: Female
  Weight: 74.91 kg

DRUGS (10)
  1. ROPINIROLE [Concomitant]
     Indication: PRODUCT USED FOR UNKNOWN INDICATION
  2. METRONIDAZOLE [Concomitant]
     Indication: PRODUCT USED FOR UNKNOWN INDICATION
  3. VITAMIN [Concomitant]
     Indication: PRODUCT USED FOR UNKNOWN INDICATION
  4. LISINOPRIL [Concomitant]
     Indication: PRODUCT USED FOR UNKNOWN INDICATION
  5. DICLOFENAC [Concomitant]
     Indication: PRODUCT USED FOR UNKNOWN INDICATION
  6. DOXCYCL [Concomitant]
     Indication: PRODUCT USED FOR UNKNOWN INDICATION
  7. OMEPRAZOLE [Concomitant]
     Indication: PRODUCT USED FOR UNKNOWN INDICATION
  8. SEASONIQUE [Concomitant]
     Indication: PRODUCT USED FOR UNKNOWN INDICATION
  9. SIMCOR [Suspect]
     Indication: PRODUCT USED FOR UNKNOWN INDICATION
     Dosage: 500/20MG
     Dates: start: 20110310
  10. IBUPROFEN [Concomitant]
     Indication: PRODUCT USED FOR UNKNOWN INDICATION

REACTIONS (10)
  - DYSPNOEA [None]
  - NAIL DISCOLOURATION [None]
  - SKIN DISCOLOURATION [None]
  - NAUSEA [None]
  - FEELING COLD [None]
  - INFLUENZA LIKE ILLNESS [None]
  - PRURITUS GENERALISED [None]
  - ORAL PRURITUS [None]
  - OEDEMA MOUTH [None]
  - COUGH [None]
